FAERS Safety Report 17655718 (Version 1)
Quarter: 2020Q2

REPORT INFORMATION
  Report Type: Spontaneous
  Country: FR (occurrence: FR)
  Receive Date: 20200410
  Receipt Date: 20200410
  Transmission Date: 20200713
  Serious: Yes (Hospitalization)
  Sender: FDA-Public Use
  Company Number: FR-TEVA-2020-FR-1221596

PATIENT
  Age: 80 Year
  Sex: Female

DRUGS (1)
  1. KETOPROFEN. [Suspect]
     Active Substance: KETOPROFEN
     Indication: CHONDRITIS
     Dosage: 200 MG
     Route: 048
     Dates: start: 202002, end: 202003

REACTIONS (1)
  - Acute kidney injury [Recovering/Resolving]

NARRATIVE: CASE EVENT DATE: 202003
